FAERS Safety Report 8965401 (Version 9)
Quarter: 2014Q4

REPORT INFORMATION
  Report Type: Spontaneous
  Country: US (occurrence: US)
  Receive Date: 20121214
  Receipt Date: 20141205
  Transmission Date: 20150529
  Serious: Yes (Hospitalization, Other)
  Sender: FDA-Public Use
  Company Number: US-009507513-1212USA005200

PATIENT
  Sex: Female
  Weight: 59.86 kg

DRUGS (5)
  1. FOSAMAX PLUS D [Suspect]
     Active Substance: ALENDRONATE SODIUM\CHOLECALCIFEROL
     Indication: OSTEOPENIA
     Dosage: 70 MG/5600 IU
     Route: 048
  2. FOSAMAX PLUS D [Suspect]
     Active Substance: ALENDRONATE SODIUM\CHOLECALCIFEROL
     Indication: OSTEOPOROSIS
     Dosage: 70 MG/2800 IU WEEKLY
     Route: 048
     Dates: start: 2005, end: 2008
  3. FOSAMAX [Suspect]
     Active Substance: ALENDRONATE SODIUM
     Indication: OSTEOPOROSIS
     Dosage: UNK
     Route: 048
     Dates: start: 2005, end: 2010
  4. FOSAMAX [Suspect]
     Active Substance: ALENDRONATE SODIUM
     Indication: OSTEOPOROSIS
     Dosage: 70 MG, WEEKLY
     Route: 048
     Dates: end: 2005
  5. FOSAMAX [Suspect]
     Active Substance: ALENDRONATE SODIUM
     Indication: OSTEOPENIA
     Dosage: 10 MG, UNK
     Route: 048
     Dates: start: 199603

REACTIONS (31)
  - Intramedullary rod insertion [Unknown]
  - Femur fracture [Recovered/Resolved]
  - Osteoporosis [Unknown]
  - Laparoscopy [Unknown]
  - Osteoarthritis [Unknown]
  - Anaemia [Unknown]
  - Anxiety [Unknown]
  - Intramedullary rod insertion [Unknown]
  - Hyperparathyroidism [Unknown]
  - Laparotomy [Unknown]
  - Nodule [Unknown]
  - Myopathy [Unknown]
  - Blood 1,25-dihydroxycholecalciferol increased [Recovered/Resolved]
  - Femur fracture [Recovering/Resolving]
  - Femur fracture [Unknown]
  - Blood cholesterol increased [Unknown]
  - Nausea [Unknown]
  - Adverse event [Unknown]
  - Hypoparathyroidism [Unknown]
  - Osteoarthritis [Unknown]
  - Gastrointestinal disorder [Unknown]
  - Parathyroid gland operation [Unknown]
  - Breast lump removal [Not Recovered/Not Resolved]
  - Adverse event [Unknown]
  - Hypercalcaemia [Unknown]
  - Cholelithiasis [Unknown]
  - Treatment failure [Unknown]
  - Breast cancer female [Not Recovered/Not Resolved]
  - Invasive ductal breast carcinoma [Unknown]
  - Hot flush [Unknown]
  - Sleep disorder [Unknown]

NARRATIVE: CASE EVENT DATE: 1997
